FAERS Safety Report 19222752 (Version 1)
Quarter: 2021Q2

REPORT INFORMATION
  Report Type: Spontaneous
  Country: US (occurrence: US)
  Receive Date: 20210506
  Receipt Date: 20210506
  Transmission Date: 20210717
  Serious: Yes (Death)
  Sender: FDA-Public Use
  Company Number: US-SUN PHARMACEUTICAL INDUSTRIES LTD-2021R1-294809

PATIENT
  Age: 66 Year
  Sex: Female

DRUGS (1)
  1. DECITABINE. [Suspect]
     Active Substance: DECITABINE
     Indication: CHEMOTHERAPY
     Dosage: 14 CYCLE
     Route: 065

REACTIONS (1)
  - Bronchopulmonary aspergillosis [Fatal]
